FAERS Safety Report 12971550 (Version 1)
Quarter: 2016Q4

REPORT INFORMATION
  Report Type: Spontaneous
  Country: US (occurrence: US)
  Receive Date: 20161123
  Receipt Date: 20161123
  Transmission Date: 20170207
  Serious: No
  Sender: FDA-Public Use
  Company Number: US-JAZZ-2016-US-020193

PATIENT
  Age: 17 Year
  Sex: Male

DRUGS (7)
  1. XYREM [Suspect]
     Active Substance: SODIUM OXYBATE
     Indication: NARCOLEPSY
     Dosage: 4.5 G, BID
     Route: 048
     Dates: start: 201609
  2. DOXEPIN [Concomitant]
     Active Substance: DOXEPIN
  3. ADDERALL [Concomitant]
     Active Substance: AMPHETAMINE ASPARTATE\AMPHETAMINE SULFATE\DEXTROAMPHETAMINE SACCHARATE\DEXTROAMPHETAMINE SULFATE
  4. AMBIEN [Concomitant]
     Active Substance: ZOLPIDEM TARTRATE
  5. BACLOFEN. [Concomitant]
     Active Substance: BACLOFEN
  6. XYREM [Suspect]
     Active Substance: SODIUM OXYBATE
     Indication: CATAPLEXY
  7. MULTIVITAMINS                      /07504101/ [Concomitant]

REACTIONS (3)
  - Hypoaesthesia [Unknown]
  - Neuralgia [Unknown]
  - Neck pain [Unknown]

NARRATIVE: CASE EVENT DATE: 201610
